FAERS Safety Report 8070029-3 (Version None)
Quarter: 2012Q1

REPORT INFORMATION
  Report Type: 
  Country: None (occurrence: None)
  Receive Date: 20120125
  Receipt Date: 20120120
  Transmission Date: 20120608
  Serious: Yes (Hospitalization)
  Sender: FDA-Public Use
  Company Number: JP-PFIZER INC-2012016084

PATIENT
  Age: 39 Year
  Sex: Male

DRUGS (5)
  1. AMOXAPINE [Suspect]
     Dosage: 25 MG, 1X/DAY
     Route: 048
  2. SULPIRIDE [Concomitant]
     Dosage: UNK
  3. AMOXAPINE [Suspect]
     Dosage: 10 MG, 3X/DAY
     Route: 048
  4. AMOXAPINE [Suspect]
     Dosage: 75 MG, 3X/DAY
     Route: 048
     Dates: start: 20120107, end: 20120114
  5. ALPRAZOLAM [Suspect]
     Dosage: 0.4 MG, 3X/DAY
     Route: 048
     Dates: start: 20110806

REACTIONS (1)
  - CONGESTIVE CARDIOMYOPATHY [None]
